FAERS Safety Report 11926545 (Version 1)
Quarter: 2016Q1

REPORT INFORMATION
  Report Type: Spontaneous
  Country: US (occurrence: None)
  Receive Date: 20160115
  Receipt Date: 20160115
  Transmission Date: 20160526
  Serious: Yes (Other)
  Sender: FDA-Public Use
  Company Number: None

PATIENT
  Age: 22 Year
  Sex: Female
  Weight: 70 kg

DRUGS (1)
  1. NEUTROGENA CLEAR PORE CLEANSER MASK [Suspect]
     Active Substance: BENZOYL PEROXIDE
     Indication: ACNE
     Dosage: 1 APPLICATION  TOPICAL
     Route: 061
     Dates: start: 20151231, end: 20151231

REACTIONS (8)
  - Application site pain [None]
  - Application site exfoliation [None]
  - Emotional distress [None]
  - Application site erythema [None]
  - Exposure during pregnancy [None]
  - Deformity [None]
  - Application site vesicles [None]
  - Application site discolouration [None]

NARRATIVE: CASE EVENT DATE: 20151231
